FAERS Safety Report 7432817-3 (Version None)
Quarter: 2011Q2

REPORT INFORMATION
  Report Type: 
  Country: None (occurrence: None)
  Receive Date: 20110422
  Receipt Date: 20110411
  Transmission Date: 20111010
  Serious: Yes (Hospitalization, Other)
  Sender: FDA-Public Use
  Company Number: US-ROCHE-761437

PATIENT
  Sex: Male
  Weight: 77.1 kg

DRUGS (1)
  1. ACCUTANE [Suspect]
     Indication: ACNE
     Route: 065
     Dates: start: 19930519, end: 19931101

REACTIONS (10)
  - COLITIS ULCERATIVE [None]
  - NEPHROLITHIASIS [None]
  - NASAL DRYNESS [None]
  - ILEUS [None]
  - DRY MOUTH [None]
  - RECTAL FISSURE [None]
  - EPISTAXIS [None]
  - DEPRESSION [None]
  - DRY SKIN [None]
  - BLOOD TRIGLYCERIDES INCREASED [None]
